FAERS Safety Report 10736125 (Version 3)
Quarter: 2015Q1

REPORT INFORMATION
  Report Type: Spontaneous
  Country: DE (occurrence: DE)
  Receive Date: 20150126
  Receipt Date: 20150309
  Transmission Date: 20150721
  Serious: Yes (Disabling, Other)
  Sender: FDA-Public Use
  Company Number: DE-JNJFOC-20150112519

PATIENT
  Age: 93 Year
  Sex: Female
  Weight: 63 kg

DRUGS (6)
  1. XARELTO [Suspect]
     Active Substance: RIVAROXABAN
     Indication: CEREBROVASCULAR ACCIDENT PROPHYLAXIS
     Route: 048
  2. XARELTO [Suspect]
     Active Substance: RIVAROXABAN
     Indication: ATRIAL FIBRILLATION
     Route: 048
  3. BISOPROLOL ALPHARMA [Concomitant]
     Route: 065
  4. XARELTO [Suspect]
     Active Substance: RIVAROXABAN
     Indication: CEREBROVASCULAR ACCIDENT PROPHYLAXIS
     Route: 048
     Dates: start: 20140717, end: 201411
  5. XARELTO [Suspect]
     Active Substance: RIVAROXABAN
     Indication: ATRIAL FIBRILLATION
     Route: 048
     Dates: start: 20140717, end: 201411
  6. TORASEMID [Concomitant]
     Active Substance: TORSEMIDE
     Route: 065

REACTIONS (4)
  - Retinal haemorrhage [Unknown]
  - Off label use [Unknown]
  - Visual impairment [Unknown]
  - Visual acuity reduced [Recovering/Resolving]

NARRATIVE: CASE EVENT DATE: 20141110
